FAERS Safety Report 21491571 (Version 1)
Quarter: 2022Q4

REPORT INFORMATION
  Report Type: Spontaneous
  Country: CA (occurrence: CA)
  Receive Date: 20221021
  Receipt Date: 20221021
  Transmission Date: 20230113
  Serious: Yes (Hospitalization)
  Sender: FDA-Public Use
  Company Number: CA-MYLANLABS-2022M1116203

PATIENT
  Age: 17 Year
  Sex: Male

DRUGS (1)
  1. BUDESONIDE [Suspect]
     Active Substance: BUDESONIDE
     Indication: Eosinophilic oesophagitis
     Dosage: 1 MILLIGRAM, BID; ORAL VISCOUS BUDESONIDE
     Route: 065

REACTIONS (2)
  - Stress [Unknown]
  - Adrenal insufficiency [Unknown]
